FAERS Safety Report 9207578 (Version 2)
Quarter: 2013Q2

REPORT INFORMATION
  Report Type: Spontaneous
  Country: US (occurrence: US)
  Receive Date: 20130403
  Receipt Date: 20130507
  Transmission Date: 20140414
  Serious: Yes (Hospitalization)
  Sender: FDA-Public Use
  Company Number: US-ROCHE-1209652

PATIENT
  Age: 55 Year
  Sex: Female
  Weight: 66.74 kg

DRUGS (24)
  1. KADCYLA [Suspect]
     Indication: BREAST CANCER METASTATIC
     Route: 042
     Dates: start: 20130305
  2. CLONAZEPAM [Concomitant]
     Route: 048
  3. KLONOPIN [Concomitant]
     Indication: PRODUCT USED FOR UNKNOWN INDICATION
     Route: 048
  4. CEFTRIAXONE [Concomitant]
  5. ERTAPENEM [Concomitant]
     Route: 042
     Dates: end: 20130407
  6. ASPIRIN [Concomitant]
     Route: 048
  7. FIORICET [Concomitant]
     Dosage: TABLET CAPSULE
     Route: 065
  8. CODEINE [Concomitant]
     Route: 048
  9. OXYCONTIN [Concomitant]
     Route: 048
  10. XANAX [Concomitant]
     Route: 048
  11. WELLBUTRIN [Concomitant]
     Dosage: SUSTAIN RELEASE
     Route: 048
  12. CLONAZEPAM [Concomitant]
  13. LEXAPRO [Concomitant]
     Route: 048
  14. CLARITIN [Concomitant]
     Route: 065
  15. HERCEPTIN [Concomitant]
     Route: 042
  16. XGEVA [Concomitant]
     Route: 058
  17. NASONEX [Concomitant]
     Route: 048
  18. NASONEX [Concomitant]
     Route: 065
  19. IMITREX [Concomitant]
     Indication: MIGRAINE
     Route: 065
  20. SOMA [Concomitant]
     Route: 065
  21. PRILOSEC [Concomitant]
     Route: 048
  22. FOLIC ACID [Concomitant]
     Route: 065
  23. VICODIN [Concomitant]
     Route: 065
  24. KCL [Concomitant]
     Route: 065

REACTIONS (3)
  - Small intestinal obstruction [Recovered/Resolved]
  - Headache [Unknown]
  - Constipation [Unknown]
